FAERS Safety Report 9244661 (Version 1)
Quarter: 2013Q2

REPORT INFORMATION
  Report Type: Spontaneous
  Country: FR (occurrence: FR)
  Receive Date: 20130422
  Receipt Date: 20130422
  Transmission Date: 20140414
  Serious: Yes (Other)
  Sender: FDA-Public Use
  Company Number: FR-JNJFOC-20130409914

PATIENT
  Sex: 0

DRUGS (18)
  1. DOXORUBICIN [Suspect]
     Indication: MANTLE CELL LYMPHOMA
     Dosage: UNDER 3 X CHOP REGIMEN (EXPERIMENTAL ARM B)
     Route: 065
  2. DOXORUBICIN [Suspect]
     Indication: MANTLE CELL LYMPHOMA
     Dosage: CONTROL ARM A
     Route: 065
  3. CYCLOPHOSPHAMIDE [Suspect]
     Indication: MANTLE CELL LYMPHOMA
     Dosage: CONTROL ARM A
     Route: 065
  4. CYCLOPHOSPHAMIDE [Suspect]
     Indication: MANTLE CELL LYMPHOMA
     Dosage: 2X60 MG/KG IN MYELOABLATIVE RADIOCHEMOTHERAPY
     Route: 065
  5. CYCLOPHOSPHAMIDE [Suspect]
     Indication: MANTLE CELL LYMPHOMA
     Dosage: UNDER 3 X CHOP REGIMEN (EXPERIMENTAL ARM B)
     Route: 065
  6. VINCRISTINE [Suspect]
     Indication: MANTLE CELL LYMPHOMA
     Dosage: CONTROL ARM A
     Route: 065
  7. VINCRISTINE [Suspect]
     Indication: MANTLE CELL LYMPHOMA
     Dosage: UNDER 3 X CHOP REGIMEN (EXPERIMENTAL ARM B)
     Route: 065
  8. PREDNISONE [Suspect]
     Indication: MANTLE CELL LYMPHOMA
     Dosage: UNDER 3 X CHOP REGIMEN (EXPERIMENTAL ARM B)
     Route: 065
  9. PREDNISONE [Suspect]
     Indication: MANTLE CELL LYMPHOMA
     Dosage: CONTROL ARM A
     Route: 065
  10. RITUXIMAB [Suspect]
     Indication: MANTLE CELL LYMPHOMA
     Dosage: UNDER 3 X CHOP REGIMEN (EXPERIMENTAL ARM B)
     Route: 065
  11. RITUXIMAB [Suspect]
     Indication: MANTLE CELL LYMPHOMA
     Dosage: CONTROL ARM A
     Route: 065
  12. THERAPEUTIC RADIOPHARMACEUTICALS [Suspect]
     Indication: MANTLE CELL LYMPHOMA
     Dosage: 12 GRAY TOTAL-BODY IRRADIATION (TBI);??CONTROL ARM A
     Route: 065
  13. THERAPEUTIC RADIOPHARMACEUTICALS [Suspect]
     Indication: MANTLE CELL LYMPHOMA
     Dosage: 10 GRAY TOTAL-BODY IRRADIATION (TBI); EXPERIMENTAL ARM B
     Route: 065
  14. DEXAMETHASONE [Suspect]
     Indication: MANTLE CELL LYMPHOMA
     Route: 065
  15. CYTARABINE [Suspect]
     Indication: MANTLE CELL LYMPHOMA
     Dosage: 12 GRAY TOTAL-BODY IRRADIATION (TBI)
     Route: 065
  16. CISPLATIN [Suspect]
     Indication: MANTLE CELL LYMPHOMA
     Dosage: 12 GRAY TOTAL-BODY IRRADIATION (TBI)
     Route: 065
  17. ARA-C [Suspect]
     Indication: MANTLE CELL LYMPHOMA
     Dosage: 4X1.5 G/M2 (EXPERIMENTAL ARM B)
     Route: 065
  18. MELPHALAN [Suspect]
     Indication: MANTLE CELL LYMPHOMA
     Dosage: (EXPERIMENTAL ARM B)
     Route: 065

REACTIONS (5)
  - Nephropathy toxic [Unknown]
  - Haematotoxicity [Unknown]
  - Mantle cell lymphoma recurrent [Unknown]
  - Nausea [Unknown]
  - Vomiting [Unknown]
